FAERS Safety Report 9903764 (Version 1)
Quarter: 2014Q1

REPORT INFORMATION
  Report Type: Report from Study
  Country: US (occurrence: US)
  Receive Date: 20140218
  Receipt Date: 20140218
  Transmission Date: 20141002
  Serious: Yes (Death)
  Sender: FDA-Public Use
  Company Number: US-ROCHE-1350405

PATIENT
  Age: 57 Year
  Sex: Male

DRUGS (1)
  1. PEGASYS [Suspect]
     Indication: HEPATITIS C
     Route: 065

REACTIONS (7)
  - Death [Fatal]
  - Weight decreased [Unknown]
  - Hypophagia [Unknown]
  - Fatigue [Unknown]
  - Fall [Unknown]
  - Loss of consciousness [Not Recovered/Not Resolved]
  - Influenza [Unknown]
